FAERS Safety Report 8132330-4 (Version None)
Quarter: 2012Q1

REPORT INFORMATION
  Report Type: 
  Country: None (occurrence: None)
  Receive Date: 20120207
  Receipt Date: 20120127
  Transmission Date: 20120608
  Serious: Yes (Hospitalization)
  Sender: FDA-Public Use
  Company Number: IMP_05730_2012

PATIENT
  Sex: Male

DRUGS (3)
  1. GLICLAZIDE [Concomitant]
  2. ACARBOSE [Concomitant]
  3. METFORMIN HCL [Suspect]
     Indication: DIABETES MELLITUS
     Dosage: (DF)

REACTIONS (13)
  - ACCIDENTAL OVERDOSE [None]
  - HYPERKALAEMIA [None]
  - DEHYDRATION [None]
  - RENAL FAILURE ACUTE [None]
  - INTENTIONAL OVERDOSE [None]
  - LACTIC ACIDOSIS [None]
  - INFLUENZA LIKE ILLNESS [None]
  - EATING DISORDER [None]
  - DISTURBANCE IN ATTENTION [None]
  - DISORIENTATION [None]
  - DIARRHOEA [None]
  - HYPOCAPNIA [None]
  - CARDIAC FAILURE [None]
